FAERS Safety Report 10480165 (Version 5)
Quarter: 2014Q4

REPORT INFORMATION
  Report Type: Spontaneous
  Country: DK (occurrence: DK)
  Receive Date: 20140929
  Receipt Date: 20141106
  Transmission Date: 20150528
  Serious: Yes (Congenital Anomaly, Other)
  Sender: FDA-Public Use
  Company Number: DK-AUROBINDO-AUR-APL-2014-10143

PATIENT
  Age: 0 Day
  Sex: Male
  Weight: 2.87 kg

DRUGS (1)
  1. ONDANSETRON [Suspect]
     Active Substance: ONDANSETRON
     Indication: PRODUCT USED FOR UNKNOWN INDICATION
     Dosage: 4 MG, 3 TIMES A DAY
     Route: 064
     Dates: start: 20110217

REACTIONS (5)
  - Hypospadias [Unknown]
  - Urethral disorder [Unknown]
  - Foetal exposure during pregnancy [Unknown]
  - Atrioventricular septal defect [Recovered/Resolved]
  - Cryptorchism [Recovered/Resolved]

NARRATIVE: CASE EVENT DATE: 20110915
